FAERS Safety Report 9935468 (Version 2)
Quarter: 2014Q2

REPORT INFORMATION
  Report Type: Spontaneous
  Country: US (occurrence: US)
  Receive Date: 20140228
  Receipt Date: 20140506
  Transmission Date: 20141212
  Serious: No
  Sender: FDA-Public Use
  Company Number: US-PFIZER INC-2014053956

PATIENT
  Age: 63 Year
  Sex: Female
  Weight: 74.83 kg

DRUGS (6)
  1. PREMARIN [Suspect]
     Dosage: 0.625 MG, UNK
     Route: 048
     Dates: start: 199709
  2. PREMARIN [Suspect]
     Dosage: 0.325 MG, UNK
  3. PREMARIN [Suspect]
     Dosage: 0.625 MG, UNK
     Dates: start: 2013
  4. IMITREX [Concomitant]
     Indication: MIGRAINE
     Dosage: 10 MG, 2X/DAY
  5. MAXALT [Concomitant]
     Indication: MIGRAINE
     Dosage: UNK
  6. VALIUM [Concomitant]
     Indication: PAIN
     Dosage: UNK

REACTIONS (1)
  - Hair colour changes [Not Recovered/Not Resolved]
